FAERS Safety Report 15006395 (Version 1)
Quarter: 2018Q2

REPORT INFORMATION
  Report Type: Report from Study
  Country: US (occurrence: US)
  Receive Date: 20180613
  Receipt Date: 20180613
  Transmission Date: 20180711
  Serious: No
  Sender: FDA-Public Use
  Company Number: US-US WORLDMEDS, LLC-USW201706-000910

PATIENT
  Age: 65 Year
  Sex: Male

DRUGS (28)
  1. ADVAIR DISKUS [Concomitant]
     Active Substance: FLUTICASONE PROPIONATE\SALMETEROL XINAFOATE
  2. XOPENEX HFA [Concomitant]
     Active Substance: LEVALBUTEROL TARTRATE
  3. SYMMETREL [Concomitant]
     Active Substance: AMANTADINE HYDROCHLORIDE
  4. ASCORBIC ACID WITH ROSE HIPS [Concomitant]
     Active Substance: ASCORBIC ACID
  5. RYTARY [Concomitant]
     Active Substance: CARBIDOPA\LEVODOPA
  6. OPTICROM [Concomitant]
     Active Substance: CROMOLYN SODIUM
  7. ZOCOR [Concomitant]
     Active Substance: SIMVASTATIN
  8. RYTARY [Concomitant]
     Active Substance: CARBIDOPA\LEVODOPA
  9. OXYCONTIN [Concomitant]
     Active Substance: OXYCODONE HYDROCHLORIDE
  10. REQUIP [Concomitant]
     Active Substance: ROPINIROLE HYDROCHLORIDE
  11. AZILECT [Concomitant]
     Active Substance: RASAGILINE MESYLATE
  12. KLONOPIN [Concomitant]
     Active Substance: CLONAZEPAM
  13. COENZYME Q10 [Concomitant]
     Active Substance: UBIDECARENONE
  14. VITAMIN D3 [Concomitant]
     Active Substance: CHOLECALCIFEROL
  15. CELEXA [Concomitant]
     Active Substance: CITALOPRAM HYDROBROMIDE
  16. LINZESS [Concomitant]
     Active Substance: LINACLOTIDE
  17. PATANOL [Concomitant]
     Active Substance: OLOPATADINE HYDROCHLORIDE
  18. ASPIRIN. [Concomitant]
     Active Substance: ASPIRIN
  19. MAGNESIUM [Concomitant]
     Active Substance: MAGNESIUM
  20. MELATONIN [Concomitant]
     Active Substance: MELATONIN
  21. NASONEX [Concomitant]
     Active Substance: MOMETASONE FUROATE
  22. NEXIUM [Concomitant]
     Active Substance: ESOMEPRAZOLE MAGNESIUM
  23. PERCOCET [Concomitant]
     Active Substance: ACETAMINOPHEN\OXYCODONE HYDROCHLORIDE
  24. OXYMETAZOLINE [Concomitant]
     Active Substance: OXYMETAZOLINE
  25. APOKYN [Suspect]
     Active Substance: APOMORPHINE HYDROCHLORIDE
     Indication: PARKINSON^S DISEASE
     Route: 058
     Dates: start: 20170616
  26. CALCIUM CITRATE-VITAMIN D [Concomitant]
     Active Substance: CALCIUM CITRATE\VITAMIN D
  27. CLARITIN [Concomitant]
     Active Substance: LORATADINE
  28. FELDENE [Concomitant]
     Active Substance: PIROXICAM

REACTIONS (2)
  - Nausea [Recovered/Resolved]
  - Contusion [Not Recovered/Not Resolved]

NARRATIVE: CASE EVENT DATE: 20170616
